FAERS Safety Report 10973586 (Version 1)
Quarter: 2015Q1

REPORT INFORMATION
  Report Type: Spontaneous
  Country: US (occurrence: None)
  Receive Date: 20150331
  Receipt Date: 20150331
  Transmission Date: 20150721
  Serious: Yes (Hospitalization)
  Sender: FDA-Public Use
  Company Number: None

PATIENT
  Sex: Male
  Weight: 9.7 kg

DRUGS (5)
  1. CEFEPIME [Concomitant]
     Active Substance: CEFEPIME\CEFEPIME HYDROCHLORIDE
  2. DAUNORUBICIN [Concomitant]
     Active Substance: DAUNORUBICIN
  3. CYTARABINE. [Concomitant]
     Active Substance: CYTARABINE
  4. FLUCONAZOLE. [Suspect]
     Active Substance: FLUCONAZOLE
     Dates: start: 20150209
  5. BORTEZOMIB [Concomitant]
     Active Substance: BORTEZOMIB

REACTIONS (6)
  - Decreased appetite [None]
  - Clostridium test positive [None]
  - Febrile neutropenia [None]
  - Weight decreased [None]
  - Respiratory syncytial virus test positive [None]
  - Mucosal inflammation [None]

NARRATIVE: CASE EVENT DATE: 20140305
